FAERS Safety Report 5806331-2 (Version None)
Quarter: 2008Q3

REPORT INFORMATION
  Report Type: 
  Country: None (occurrence: None)
  Receive Date: 20080702
  Receipt Date: 20070709
  Transmission Date: 20090109
  Serious: No
  Sender: FDA-Public Use
  Company Number: 2007-BP-05508BP

PATIENT
  Age: 62 Year
  Sex: Female

DRUGS (10)
  1. MIRAPEX [Suspect]
     Indication: RESTLESS LEGS SYNDROME
     Dosage: 1.25 MG (0.25 MG,0.25 MG X 5),PO
     Route: 048
     Dates: start: 20040101
  2. NEURONTIN [Concomitant]
  3. TRIAMERENE (TRIAMTERENE) [Concomitant]
  4. EFFEXOR [Concomitant]
  5. PREMPRO (PROVELLA-14) [Concomitant]
  6. METFORMIN HCL [Concomitant]
  7. PROTONIX [Concomitant]
  8. LEVOTHYROXINE SODIUM [Concomitant]
  9. VYTORIN [Concomitant]
  10. JANUVIA (ALL OTHER THERAPEUTIC PRODUCTS) [Concomitant]

REACTIONS (4)
  - DRUG EFFECT DECREASED [None]
  - MUSCULOSKELETAL DISCOMFORT [None]
  - RESTLESS LEGS SYNDROME [None]
  - SOMNOLENCE [None]
